FAERS Safety Report 9750970 (Version 1)
Quarter: 2013Q4

REPORT INFORMATION
  Report Type: Spontaneous
  Country: US (occurrence: US)
  Receive Date: 20131212
  Receipt Date: 20131212
  Transmission Date: 20140711
  Serious: No
  Sender: FDA-Public Use
  Company Number: US-TEVA-400020USA

PATIENT
  Age: 19 Year
  Sex: Female
  Weight: 56.75 kg

DRUGS (1)
  1. PARAGARD 380A [Suspect]
     Indication: CONTRACEPTION
     Route: 015
     Dates: start: 20121219

REACTIONS (4)
  - Abdominal pain [Not Recovered/Not Resolved]
  - Metrorrhagia [Not Recovered/Not Resolved]
  - Menorrhagia [Not Recovered/Not Resolved]
  - Genital discharge [Not Recovered/Not Resolved]
